FAERS Safety Report 20750475 (Version 1)
Quarter: 2022Q2

REPORT INFORMATION
  Report Type: Spontaneous
  Country: US (occurrence: None)
  Receive Date: 20220426
  Receipt Date: 20220426
  Transmission Date: 20220721
  Serious: Yes (Disabling, Other)
  Sender: FDA-Public Use
  Company Number: None

PATIENT

DRUGS (1)
  1. SUBOXONE [Suspect]
     Active Substance: BUPRENORPHINE HYDROCHLORIDE\NALOXONE HYDROCHLORIDE

REACTIONS (6)
  - Tooth loss [None]
  - Withdrawal syndrome [None]
  - Constipation [None]
  - Loss of employment [None]
  - Major depression [None]
  - Bone loss [None]

NARRATIVE: CASE EVENT DATE: 20100810
